FAERS Safety Report 5908360-7 (Version None)
Quarter: 2008Q4

REPORT INFORMATION
  Report Type: 
  Country: None (occurrence: None)
  Receive Date: 20081006
  Receipt Date: 20080925
  Transmission Date: 20090506
  Serious: Yes (Life-Threatening, Hospitalization, Other)
  Sender: FDA-Public Use
  Company Number: FR-JNJFOC-20080802321

PATIENT
  Age: 72 Year
  Sex: Male
  Weight: 84 kg

DRUGS (13)
  1. REMICADE [Suspect]
     Indication: COLITIS ULCERATIVE
     Route: 042
  2. HYDROCORTISONE [Concomitant]
     Indication: COLITIS ULCERATIVE
  3. ZOCOR [Concomitant]
     Indication: HYPERCHOLESTEROLAEMIA
     Dosage: ^DOSE: 20^
     Route: 048
  4. SPECIAFOLDINE [Concomitant]
     Indication: ANAEMIA
     Dosage: ^DOSE: 5^
     Route: 048
  5. PREVISCAN [Concomitant]
     Indication: CARDIAC DISORDER
     Dosage: ^DOSE: 20; UNIT: 3/4^
     Route: 048
  6. SOTALOL [Concomitant]
     Indication: TACHYCARDIA
     Dosage: ^DOSE: 80; UNIT: 1/2^
     Route: 048
  7. FLECAINE LP [Concomitant]
     Indication: TACHYCARDIA
     Dosage: ^DOSE: 200^
     Route: 048
  8. IMODIUM [Concomitant]
     Indication: DIARRHOEA
     Dosage: ^DOSE: 0.2; UNIT: 1^
     Route: 048
  9. SPASFON [Concomitant]
     Indication: PAIN
     Dosage: ^DOSE: 80; UNIT: 1^
     Route: 048
  10. NOVORAPID [Concomitant]
     Indication: DIABETES MELLITUS
     Dosage: ^DOSE: 1000; UNIT: 1; ROUTE: ORAL^
     Route: 048
  11. IMOVANE [Concomitant]
     Indication: INSOMNIA
     Dosage: ^DOSE: 3.75^
     Route: 048
  12. XALATAN [Concomitant]
     Indication: GLAUCOMA
     Dosage: ROUTE: LOCAL
     Route: 059
  13. AZOPT [Concomitant]
     Indication: GLAUCOMA
     Dosage: ^DOSE: 10; ROUTE: LOCAL^
     Route: 059

REACTIONS (4)
  - COLITIS [None]
  - DIARRHOEA HAEMORRHAGIC [None]
  - ESCHERICHIA INFECTION [None]
  - PROCTITIS [None]
